FAERS Safety Report 9990737 (Version 1)
Quarter: 2014Q1

REPORT INFORMATION
  Report Type: Spontaneous
  Country: US (occurrence: None)
  Receive Date: 20140307
  Receipt Date: 20140307
  Transmission Date: 20141002
  Serious: Yes (Hospitalization)
  Sender: FDA-Public Use
  Company Number: None

PATIENT
  Sex: 0

DRUGS (2)
  1. TEMAZEPAM [Suspect]
     Indication: INSOMNIA
     Route: 048
     Dates: start: 20110806
  2. ACETAMINOPHEN/OXYCODONE [Suspect]
     Indication: PAIN
     Route: 048
     Dates: start: 20120402

REACTIONS (4)
  - Confusional state [None]
  - Sedation [None]
  - Investigation [None]
  - Urinary retention [None]
